FAERS Safety Report 11114624 (Version 1)
Quarter: 2015Q2

REPORT INFORMATION
  Report Type: Spontaneous
  Country: FR (occurrence: FR)
  Receive Date: 20150515
  Receipt Date: 20150515
  Transmission Date: 20150821
  Serious: Yes (Hospitalization)
  Sender: FDA-Public Use
  Company Number: FR-ROCHE-1576855

PATIENT
  Age: 86 Year
  Sex: Female

DRUGS (9)
  1. LASILIX [Concomitant]
     Active Substance: FUROSEMIDE
  2. SIFROL [Concomitant]
     Active Substance: PRAMIPEXOLE
  3. PREVISCAN (FLUINDIONE) [Suspect]
     Active Substance: FLUINDIONE
     Indication: PULMONARY EMBOLISM
     Route: 048
     Dates: start: 20150320, end: 20150327
  4. MODOPAR [Concomitant]
     Active Substance: BENSERAZIDE HYDROCHLORIDE\LEVODOPA
  5. AMIODARONE [Concomitant]
     Active Substance: AMIODARONE
  6. ROCEPHINE [Suspect]
     Active Substance: CEFTRIAXONE SODIUM
     Indication: PYREXIA
     Route: 042
     Dates: start: 20150325, end: 20150330
  7. DAFALGAN [Concomitant]
     Active Substance: ACETAMINOPHEN
  8. IMOVANE [Concomitant]
     Active Substance: ZOPICLONE
  9. DIFFU K [Concomitant]
     Active Substance: POTASSIUM CHLORIDE

REACTIONS (3)
  - Gastrointestinal haemorrhage [Recovered/Resolved with Sequelae]
  - Anaemia [Recovering/Resolving]
  - Melaena [Recovered/Resolved]
